FAERS Safety Report 10571254 (Version 4)
Quarter: 2016Q3

REPORT INFORMATION
  Report Type: Spontaneous
  Country: US (occurrence: US)
  Receive Date: 20141107
  Receipt Date: 20160915
  Transmission Date: 20161109
  Serious: Yes (Hospitalization, Disabling, Other)
  Sender: FDA-Public Use
  Company Number: US-009507513-1411USA000520

PATIENT
  Sex: Female

DRUGS (2)
  1. FOSAMAX PLUS D [Suspect]
     Active Substance: ALENDRONATE SODIUM\CHOLECALCIFEROL
     Indication: OSTEOPOROSIS
     Dosage: 70 MG, QW
     Route: 048
     Dates: start: 2005, end: 2008
  2. FOSAMAX [Suspect]
     Active Substance: ALENDRONATE SODIUM
     Indication: OSTEOPOROSIS
     Dosage: 70 MG, QW
     Route: 048
     Dates: start: 1999, end: 2008

REACTIONS (13)
  - Patella fracture [Unknown]
  - Contusion [Recovering/Resolving]
  - Fall [Unknown]
  - Femur fracture [Unknown]
  - Balance disorder [Not Recovered/Not Resolved]
  - Hyperlipidaemia [Unknown]
  - Fall [Unknown]
  - Back pain [Unknown]
  - Osteoarthritis [Unknown]
  - Foot fracture [Unknown]
  - Upper limb fracture [Unknown]
  - Femur fracture [Unknown]
  - Essential hypertension [Unknown]

NARRATIVE: CASE EVENT DATE: 2000
